FAERS Safety Report 5697204-7 (Version None)
Quarter: 2008Q2

REPORT INFORMATION
  Report Type: 
  Country: None (occurrence: None)
  Receive Date: 20080408
  Receipt Date: 20070709
  Transmission Date: 20081010
  Serious: Yes (Hospitalization)
  Sender: FDA-Public Use
  Company Number: US-BAYER-US-2007-026559

PATIENT
  Sex: Female

DRUGS (1)
  1. YASMIN [Suspect]
     Route: 048

REACTIONS (1)
  - HOSPITALISATION [None]
